FAERS Safety Report 4839360-6 (Version None)
Quarter: 2005Q4

REPORT INFORMATION
  Report Type: 
  Country: None (occurrence: None)
  Receive Date: 20051129
  Receipt Date: 20050202
  Transmission Date: 20060501
  Serious: Yes (Other)
  Sender: FDA-Public Use
  Company Number: US-GLAXOSMITHKLINE-A0543524A

PATIENT
  Sex: Male

DRUGS (2)
  1. WELLBUTRIN [Suspect]
     Indication: DRUG USE FOR UNKNOWN INDICATION
     Route: 048
  2. WELLBUTRIN [Suspect]

REACTIONS (2)
  - HYPERSENSITIVITY [None]
  - PRURITUS [None]
